FAERS Safety Report 14995614 (Version 1)
Quarter: 2018Q2

REPORT INFORMATION
  Report Type: Spontaneous
  Country: US (occurrence: US)
  Receive Date: 20180521
  Receipt Date: 20180521
  Transmission Date: 20180711
  Serious: Yes (Hospitalization)
  Sender: FDA-Public Use
  Company Number: None

PATIENT
  Sex: Male

DRUGS (9)
  1. TACROLIMUS. [Suspect]
     Active Substance: TACROLIMUS
     Indication: HEART TRANSPLANT
     Route: 048
     Dates: start: 20140611
  2. PREVACID [Concomitant]
     Active Substance: LANSOPRAZOLE
  3. TACROLIMUS. [Suspect]
     Active Substance: TACROLIMUS
     Indication: HEART TRANSPLANT
     Route: 048
     Dates: start: 20140611
  4. TRICOR [Concomitant]
     Active Substance: FENOFIBRATE
  5. ASPIRIN. [Concomitant]
     Active Substance: ASPIRIN
  6. PENTASA [Concomitant]
     Active Substance: MESALAMINE
  7. LISINOPRIL. [Concomitant]
     Active Substance: LISINOPRIL
  8. MAGNESIUM OX [Concomitant]
  9. MYCOPHENOLATE [Concomitant]
     Active Substance: MYCOPHENOLIC ACID

REACTIONS (1)
  - Crohn^s disease [None]
